FAERS Safety Report 5367916-3 (Version None)
Quarter: 2007Q2

REPORT INFORMATION
  Report Type: 
  Country: None (occurrence: None)
  Receive Date: 20070622
  Receipt Date: 20070614
  Transmission Date: 20071010
  Serious: Yes (Other)
  Sender: FDA-Public Use
  Company Number: US-PFIZER INC-2007040271

PATIENT
  Age: 60 Year
  Sex: Male
  Weight: 100.7 kg

DRUGS (4)
  1. LIPITOR [Suspect]
     Indication: BLOOD CHOLESTEROL INCREASED
     Dates: start: 20020716, end: 20070508
  2. PROZAC [Concomitant]
  3. PLENDIL [Concomitant]
     Dosage: DAILY DOSE:5MG-FREQ:DAILY
  4. WELLBUTRIN [Concomitant]

REACTIONS (4)
  - ARTHRALGIA [None]
  - ARTHROPOD BITE [None]
  - MUSCLE DISORDER [None]
  - PAIN IN EXTREMITY [None]
